FAERS Safety Report 19926875 (Version 2)
Quarter: 2022Q1

REPORT INFORMATION
  Report Type: Spontaneous
  Country: JP (occurrence: JP)
  Receive Date: 20211007
  Receipt Date: 20220125
  Transmission Date: 20220423
  Serious: Yes (Hospitalization, Other)
  Sender: FDA-Public Use
  Company Number: JP-TAKEDA-2021TJP096937

PATIENT
  Age: 6 Decade
  Sex: Male

DRUGS (1)
  1. ALUNBRIG [Suspect]
     Active Substance: BRIGATINIB
     Indication: Product used for unknown indication
     Dosage: 180 MILLIGRAM, QD
     Route: 048
     Dates: start: 20210618

REACTIONS (2)
  - Metastases to heart [Unknown]
  - Metastases to liver [Unknown]

NARRATIVE: CASE EVENT DATE: 20210901
